FAERS Safety Report 9115629 (Version 1)
Quarter: 2013Q1

REPORT INFORMATION
  Report Type: Spontaneous
  Country: US (occurrence: US)
  Receive Date: 20130225
  Receipt Date: 20130225
  Transmission Date: 20140127
  Serious: No
  Sender: FDA-Public Use
  Company Number: US-BRISTOL-MYERS SQUIBB COMPANY-16506941

PATIENT
  Sex: 0

DRUGS (1)
  1. KENALOG-10 INJ [Suspect]
     Dosage: EPIDURAL INJECTIONS OF KENALOG 10
     Route: 008

REACTIONS (1)
  - Incorrect route of drug administration [Unknown]
